FAERS Safety Report 9466826 (Version 2)
Quarter: 2013Q4

REPORT INFORMATION
  Report Type: Spontaneous
  Country: US (occurrence: None)
  Receive Date: 20130816
  Receipt Date: 20131224
  Transmission Date: 20140711
  Serious: Yes (Death)
  Sender: FDA-Public Use
  Company Number: UTC-036526

PATIENT
  Age: 70 Year
  Sex: Female
  Weight: 87.72 kg

DRUGS (2)
  1. REMODULIN (5 MILLIGRAM/MILLILITERS, INJECTION FOR [Suspect]
     Indication: COR PULMONALE CHRONIC
     Dosage: (0.36 UG/KG, 1 IN 1 MIN
     Route: 058
     Dates: start: 20130410, end: 20130803
  2. TRACLEER [Concomitant]

REACTIONS (3)
  - Death [None]
  - Respiratory failure [None]
  - Lupus pneumonitis [None]
